FAERS Safety Report 6311736-X (Version None)
Quarter: 2009Q3

REPORT INFORMATION
  Report Type: 
  Country: None (occurrence: None)
  Receive Date: 20090813
  Receipt Date: 20090813
  Transmission Date: 20100115
  Serious: Yes (Other)
  Sender: FDA-Public Use
  Company Number: None

PATIENT
  Age: 67 Year
  Sex: Female
  Weight: 59.8748 kg

DRUGS (2)
  1. LISINOPRIL [Suspect]
     Indication: BLOOD PRESSURE
     Dosage: 1 AT NIGHT MOUTH
     Route: 048
  2. SIMVASTATIN [Suspect]
     Indication: BLOOD CHOLESTEROL
     Dosage: 1 AT NIGHT MOUTH
     Route: 048

REACTIONS (10)
  - ALOPECIA [None]
  - DIZZINESS [None]
  - ERYTHEMA [None]
  - HAIR TEXTURE ABNORMAL [None]
  - HEADACHE [None]
  - LIP PAIN [None]
  - LIP SWELLING [None]
  - PARAESTHESIA [None]
  - SKIN BURNING SENSATION [None]
  - SKIN DISCOLOURATION [None]
